FAERS Safety Report 12282874 (Version 1)
Quarter: 2016Q2

REPORT INFORMATION
  Report Type: Spontaneous
  Country: US (occurrence: US)
  Receive Date: 20160419
  Receipt Date: 20160419
  Transmission Date: 20160815
  Serious: Yes (Death)
  Sender: FDA-Public Use
  Company Number: US-ROXANE LABORATORIES, INC.-2016-RO-00687RO

PATIENT
  Age: 38 Year
  Sex: Male

DRUGS (1)
  1. DOLOPHINE [Suspect]
     Active Substance: METHADONE HYDROCHLORIDE
     Indication: PRODUCT USED FOR UNKNOWN INDICATION
     Route: 065

REACTIONS (1)
  - Accidental overdose [Fatal]

NARRATIVE: CASE EVENT DATE: 2013
